FAERS Safety Report 7340496-9 (Version None)
Quarter: 2011Q1

REPORT INFORMATION
  Report Type: 
  Country: None (occurrence: None)
  Receive Date: 20110309
  Receipt Date: 20091117
  Transmission Date: 20110831
  Serious: Yes (Other)
  Sender: FDA-Public Use
  Company Number: GB-SANOFI-AVENTIS-2009SA002697

PATIENT
  Age: 78 Year
  Sex: Female

DRUGS (3)
  1. OXALIPLATIN [Suspect]
     Indication: COLORECTAL CANCER METASTATIC
     Dates: start: 20090101
  2. CAPECITABINE [Suspect]
     Indication: COLON CANCER METASTATIC
     Dates: start: 20090101
  3. CAPECITABINE [Suspect]
     Dates: start: 20080301

REACTIONS (8)
  - LIVER DISORDER [None]
  - BALANCE DISORDER [None]
  - ISCHAEMIA [None]
  - NEUROTOXICITY [None]
  - ATAXIA [None]
  - NERVOUS SYSTEM DISORDER [None]
  - CEREBELLAR SYNDROME [None]
  - DISEASE PROGRESSION [None]
